FAERS Safety Report 24026279 (Version 1)
Quarter: 2024Q2

REPORT INFORMATION
  Report Type: Spontaneous
  Country: GB (occurrence: GB)
  Receive Date: 20240628
  Receipt Date: 20240628
  Transmission Date: 20240716
  Serious: Yes (Other)
  Sender: FDA-Public Use
  Company Number: GB-MHRA-MED-202406171146230370-MZGPH

PATIENT
  Age: 72 Year

DRUGS (7)
  1. AMOXICILLIN\CLAVULANATE POTASSIUM [Suspect]
     Active Substance: AMOXICILLIN\CLAVULANATE POTASSIUM
     Indication: Product used for unknown indication
     Dosage: UNK
     Route: 065
  2. GABAPENTIN [Suspect]
     Active Substance: GABAPENTIN
     Indication: Product used for unknown indication
     Dosage: UNK
     Route: 065
  3. CLARITHROMYCIN [Suspect]
     Active Substance: CLARITHROMYCIN
     Indication: Pneumonia
     Dosage: 500 MILLIGRAM, EVERY OTHER DAY
     Route: 065
     Dates: start: 20240612
  4. BACLOFEN [Concomitant]
     Active Substance: BACLOFEN
     Indication: Muscle spasms
     Dosage: UNK
     Route: 065
     Dates: start: 20050101
  5. BACLOFEN [Concomitant]
     Active Substance: BACLOFEN
     Indication: Neuralgia
  6. LYRICA [Concomitant]
     Active Substance: PREGABALIN
     Indication: Muscle spasms
     Dosage: UNK
     Route: 065
     Dates: start: 20050101
  7. LYRICA [Concomitant]
     Active Substance: PREGABALIN
     Indication: Neuralgia

REACTIONS (1)
  - Hallucination [Not Recovered/Not Resolved]

NARRATIVE: CASE EVENT DATE: 20240615
